FAERS Safety Report 9092616 (Version 1)
Quarter: 2013Q1

REPORT INFORMATION
  Report Type: Spontaneous
  Country: US (occurrence: US)
  Receive Date: 20130131
  Receipt Date: 20130131
  Transmission Date: 20140127
  Serious: No
  Sender: FDA-Public Use
  Company Number: US-009507513-1301USA013637

PATIENT
  Age: 57 Year
  Sex: Male

DRUGS (10)
  1. VICTRELIS [Suspect]
     Dosage: 4 DF(800 MG), TID EVERY 7-9 HOURS
     Route: 048
  2. PEGINTRON [Suspect]
  3. RIBAPAK [Suspect]
  4. VIAGRA [Concomitant]
  5. IMITREX (SUMATRIPTAN) [Concomitant]
  6. OMEGA-3 MARINE TRIGLYCERIDES [Concomitant]
  7. VITAMIN D (UNSPECIFIED) [Concomitant]
  8. VITAMINS (UNSPECIFIED) [Concomitant]
  9. GLUCOSAMINE [Concomitant]
  10. TURMERIC [Concomitant]

REACTIONS (1)
  - Memory impairment [Unknown]
